FAERS Safety Report 16408649 (Version 1)
Quarter: 2019Q2

REPORT INFORMATION
  Report Type: Spontaneous
  Country: US (occurrence: US)
  Receive Date: 20190502
  Receipt Date: 20190502
  Transmission Date: 20190711
  Serious: Yes (Hospitalization)
  Sender: FDA-Public Use
  Company Number: None

PATIENT
  Age: 67 Year
  Sex: Female
  Weight: 97.52 kg

DRUGS (13)
  1. DOMPERIDONE 10MG [Suspect]
     Active Substance: DOMPERIDONE
     Indication: IMPAIRED GASTRIC EMPTYING
     Route: 048
     Dates: start: 20141017
  2. ALUMINUM HYDROXIDE-MAGNESIUM CARBONARE [Concomitant]
  3. LISINOPRIL. [Concomitant]
     Active Substance: LISINOPRIL
  4. CELECOXIB. [Concomitant]
     Active Substance: CELECOXIB
  5. GAVISCON EXTRA RELIEF FORMULA [Concomitant]
  6. BIOTIN [Concomitant]
     Active Substance: BIOTIN
  7. DEXILANT [Concomitant]
     Active Substance: DEXLANSOPRAZOLE
  8. DOCUSATE SODIUM. [Concomitant]
     Active Substance: DOCUSATE SODIUM
  9. EXEMESTANE. [Concomitant]
     Active Substance: EXEMESTANE
  10. COENZYME Q10 [Suspect]
     Active Substance: UBIDECARENONE
  11. BENZONATATE. [Concomitant]
     Active Substance: BENZONATATE
  12. CALTRATE [Suspect]
     Active Substance: CALCIUM CARBONATE
  13. ULTI-VITAMIN, N [Concomitant]

REACTIONS (6)
  - Pneumonia [None]
  - Vomiting [None]
  - Pleural effusion [None]
  - Throat irritation [None]
  - Chest pain [None]
  - Atelectasis [None]

NARRATIVE: CASE EVENT DATE: 20190420
